FAERS Safety Report 24952826 (Version 1)
Quarter: 2025Q1

REPORT INFORMATION
  Report Type: Report from Study
  Country: US (occurrence: US)
  Receive Date: 20250211
  Receipt Date: 20250211
  Transmission Date: 20250409
  Serious: Yes (Other)
  Sender: ABBVIE
  Company Number: US-ABBVIE-6120947

PATIENT
  Sex: Female

DRUGS (1)
  1. SYNTHROID [Suspect]
     Active Substance: LEVOTHYROXINE SODIUM
     Indication: Papillary thyroid cancer
     Route: 048

REACTIONS (5)
  - Dizziness [Unknown]
  - Brain fog [Unknown]
  - Appetite disorder [Unknown]
  - Fear [Unknown]
  - Hypersomnia [Unknown]
